FAERS Safety Report 23100132 (Version 1)
Quarter: 2023Q4

REPORT INFORMATION
  Report Type: Spontaneous
  Country: US (occurrence: US)
  Receive Date: 20231024
  Receipt Date: 20231024
  Transmission Date: 20240109
  Serious: No
  Sender: FDA-Public Use
  Company Number: US-BAYER-2023A149121

PATIENT
  Age: 10 Year
  Sex: Male

DRUGS (1)
  1. ALEVE [Suspect]
     Active Substance: NAPROXEN SODIUM
     Indication: Pain
     Dosage: 3 DF
     Route: 048
     Dates: start: 20231018, end: 20231018

REACTIONS (2)
  - Accidental exposure to product by child [None]
  - Feeling abnormal [None]

NARRATIVE: CASE EVENT DATE: 20231018
